FAERS Safety Report 4721499-7 (Version None)
Quarter: 2005Q3

REPORT INFORMATION
  Report Type: 
  Country: None (occurrence: None)
  Receive Date: 20050721
  Receipt Date: 20041020
  Transmission Date: 20060218
  Serious: No
  Sender: FDA-Public Use
  Company Number: US-BRISTOL-MYERS SQUIBB COMPANY-12738076

PATIENT
  Age: 71 Year
  Sex: Female
  Weight: 63 kg

DRUGS (6)
  1. COUMADIN [Suspect]
     Indication: THROMBOSIS PROPHYLAXIS
     Dosage: 5MG, 4 X'S WEEK + 2.5MG, 3 X'S WEEK; INTERRUPTED, THEN DISCONTINUED.
     Route: 048
     Dates: end: 20041001
  2. ENALAPRIL [Concomitant]
     Dosage: 1 TABLET ONCE A DAY SINCE 1970'S
     Route: 048
     Dates: start: 19700101
  3. LANOXIN [Concomitant]
     Dosage: 1 TABLET 3 X'S WEEK, ONCE A DAY
     Route: 048
  4. SPIRONOLACTONE [Concomitant]
     Dosage: 1 TABLET ONCE A DAY FOR 3 YEARS
     Route: 048
  5. FUROSEMIDE [Concomitant]
     Dosage: 1 TABLET ONCE A DAY, 4 DAYS A WEEK SINCE 1970'S
     Route: 048
     Dates: start: 19700101
  6. VERAPAMIL [Concomitant]
     Dosage: 1 TABLET ONCE A DAY SINCE 1970'S
     Route: 048
     Dates: start: 19700101

REACTIONS (4)
  - ASTHENIA [None]
  - EPISTAXIS [None]
  - PROTHROMBIN TIME ABNORMAL [None]
  - PROTHROMBIN TIME PROLONGED [None]
